FAERS Safety Report 9098775 (Version 1)
Quarter: 2013Q1

REPORT INFORMATION
  Report Type: Report from Study
  Country: JP (occurrence: JP)
  Receive Date: 20130213
  Receipt Date: 20130213
  Transmission Date: 20140127
  Serious: Yes (Other)
  Sender: FDA-Public Use
  Company Number: JP-VERTEX PHARMACEUTICALS INC.-2013-001914

PATIENT
  Age: 52 Year
  Sex: Male

DRUGS (5)
  1. VX-950 (TELAPREVIR) [Suspect]
     Indication: CHRONIC HEPATITIS C
     Dosage: 2250 MG, QD
     Route: 048
     Dates: start: 20120809, end: 20121101
  2. RIBAVIRIN [Suspect]
     Indication: CHRONIC HEPATITIS C
     Dosage: 800 MG, QD
     Route: 048
     Dates: start: 20120809, end: 20130124
  3. PEGINTERFERON ALFA-2B [Suspect]
     Indication: CHRONIC HEPATITIS C
     Dosage: 1.5 ?G/KG, WEEK
     Route: 058
     Dates: start: 20120809, end: 20130124
  4. EPADEL [Concomitant]
     Dosage: 1800 MG, QD
     Route: 048
     Dates: end: 20130124
  5. REBAMIPIDE [Concomitant]
     Dosage: 100 MG, PRN
     Route: 048
     Dates: start: 20120809, end: 20130124

REACTIONS (1)
  - White blood cell count decreased [Not Recovered/Not Resolved]
